FAERS Safety Report 8238737-9 (Version None)
Quarter: 2012Q1

REPORT INFORMATION
  Report Type: 
  Country: None (occurrence: None)
  Receive Date: 20120326
  Receipt Date: 20120312
  Transmission Date: 20120608
  Serious: Yes (Death)
  Sender: FDA-Public Use
  Company Number: 2012ST0000262

PATIENT
  Age: 76 Year
  Sex: Male

DRUGS (1)
  1. MATULANE [Suspect]
     Indication: LYMPHOMA
     Dosage: 50 MG; QD; PO
     Route: 048
     Dates: start: 20111118, end: 20120101

REACTIONS (1)
  - DEATH [None]
